FAERS Safety Report 13588270 (Version 4)
Quarter: 2017Q2

REPORT INFORMATION
  Report Type: Report from Study
  Country: US (occurrence: US)
  Receive Date: 20170528
  Receipt Date: 20170622
  Transmission Date: 20170830
  Serious: No
  Sender: FDA-Public Use
  Company Number: US-AMGEN-USASL2017078312

PATIENT
  Age: 64 Year
  Sex: Male

DRUGS (1)
  1. ENBREL [Suspect]
     Active Substance: ETANERCEPT
     Indication: RHEUMATOID ARTHRITIS
     Dosage: 50 MG, QWK
     Route: 058
     Dates: start: 20170311

REACTIONS (13)
  - Injection site rash [Unknown]
  - Back pain [Unknown]
  - Fall [Unknown]
  - Arthralgia [Unknown]
  - Fatigue [Unknown]
  - Injection site swelling [Unknown]
  - Concussion [Unknown]
  - Headache [Unknown]
  - Asthma [Unknown]
  - Musculoskeletal pain [Unknown]
  - Head injury [Unknown]
  - Injection site bruising [Unknown]
  - Vision blurred [Unknown]

NARRATIVE: CASE EVENT DATE: 2017
